FAERS Safety Report 7215344-8 (Version None)
Quarter: 2011Q1

REPORT INFORMATION
  Report Type: 
  Country: None (occurrence: None)
  Receive Date: 20110104
  Receipt Date: 20110104
  Transmission Date: 20110831
  Serious: Yes (Life-Threatening, Hospitalization)
  Sender: FDA-Public Use
  Company Number: None

PATIENT
  Age: 51 Year
  Sex: Female
  Weight: 52.1637 kg

DRUGS (3)
  1. OXISTAT [Suspect]
     Indication: SEBORRHOEIC DERMATITIS
     Dosage: 1 APPLICATION 2X/DAY TOPICAL 060
     Route: 061
     Dates: start: 20090101, end: 20090310
  2. ELIDEL [Suspect]
     Indication: SEBORRHOEIC DERMATITIS
     Dosage: 1 APPLICATION 2X/DAY TOPICAL 060
     Route: 061
     Dates: start: 20090311, end: 20090322
  3. ELIDEL [Suspect]
     Indication: SEBORRHOEIC DERMATITIS
     Dosage: 1 APPLICATION 2X/DAY TOPICAL 060
     Route: 061
     Dates: start: 20090521, end: 20090602

REACTIONS (3)
  - LYMPHOCYTIC LYMPHOMA [None]
  - LUNG NEOPLASM MALIGNANT [None]
  - BREAST CANCER [None]
